FAERS Safety Report 24711182 (Version 3)
Quarter: 2024Q4

REPORT INFORMATION
  Report Type: Spontaneous
  Country: GR (occurrence: GR)
  Receive Date: 20241209
  Receipt Date: 20241212
  Transmission Date: 20250114
  Serious: Yes (Other)
  Sender: NOVARTIS
  Company Number: GR-002147023-NVSC2024GR232965

PATIENT
  Age: 79 Year
  Sex: Male

DRUGS (17)
  1. DEFERASIROX [Suspect]
     Active Substance: DEFERASIROX
     Indication: 5q minus syndrome
     Dosage: UNK
     Route: 065
  2. DEFERASIROX [Suspect]
     Active Substance: DEFERASIROX
     Dosage: UNK
     Route: 065
  3. LENALIDOMIDE [Suspect]
     Active Substance: LENALIDOMIDE
     Indication: 5q minus syndrome
     Dosage: 10 MG, 1X PER DAY, 21 DAYS IN 28-DAY CYCLES
     Route: 058
  4. LENALIDOMIDE [Suspect]
     Active Substance: LENALIDOMIDE
     Dosage: 1.33 MG/KG
     Route: 058
  5. LENALIDOMIDE [Suspect]
     Active Substance: LENALIDOMIDE
     Dosage: 10 MG
     Route: 065
  6. FILGRASTIM [Suspect]
     Active Substance: FILGRASTIM
     Indication: 5q minus syndrome
     Dosage: UNK
     Route: 065
  7. FILGRASTIM [Suspect]
     Active Substance: FILGRASTIM
     Dosage: UNK
     Route: 065
  8. AZACITIDINE [Suspect]
     Active Substance: AZACITIDINE
     Indication: 5q minus syndrome
     Dosage: UNK (5 CYCLES)
     Route: 065
  9. LUSPATERCEPT [Suspect]
     Active Substance: LUSPATERCEPT
     Indication: 5q minus syndrome
     Dosage: 1 MG/KG (1MG/KG, AND THE DOSE WAS INCREASED AFTER TWO 21-DAY CYCLES TO 1.33?MG/KG)
     Route: 058
  10. LUSPATERCEPT [Suspect]
     Active Substance: LUSPATERCEPT
     Dosage: 1.33 MG/KG (1MG/KG, AND THE DOSE WAS INCREASED AFTER TWO 21-DAY CYCLES TO 1.33?MG/KG)
     Route: 058
  11. EPOETIN ALFA [Suspect]
     Active Substance: ERYTHROPOIETIN
     Indication: 5q minus syndrome
     Dosage: UNK
     Route: 065
  12. DEFERASIROX [Concomitant]
     Active Substance: DEFERASIROX
     Indication: 5q minus syndrome
     Dosage: UNK
     Route: 065
  13. DEFERASIROX [Concomitant]
     Active Substance: DEFERASIROX
     Dosage: UNK
     Route: 065
  14. DEFERASIROX [Concomitant]
     Active Substance: DEFERASIROX
     Dosage: UNK
     Route: 065
  15. DEFERASIROX [Concomitant]
     Active Substance: DEFERASIROX
     Dosage: UNK
     Route: 065
  16. DEFERASIROX [Concomitant]
     Active Substance: DEFERASIROX
     Dosage: UNK
     Route: 065
  17. DEFERASIROX [Concomitant]
     Active Substance: DEFERASIROX
     Dosage: UNK
     Route: 065

REACTIONS (6)
  - Neutropenia [Recovering/Resolving]
  - Thrombocytopenia [Recovering/Resolving]
  - Haematotoxicity [Recovering/Resolving]
  - Anaemia [Recovering/Resolving]
  - Drug ineffective [Recovering/Resolving]
  - Off label use [Unknown]
